FAERS Safety Report 20439341 (Version 2)
Quarter: 2022Q2

REPORT INFORMATION
  Report Type: Other
  Country: IL (occurrence: None)
  Receive Date: 20220207
  Receipt Date: 20220523
  Transmission Date: 20220720
  Serious: Yes (Other)
  Sender: FDA-Public Use
  Company Number: IL-ROCHE-3016318

PATIENT

DRUGS (3)
  1. RITUXIMAB [Suspect]
     Active Substance: RITUXIMAB
     Indication: Diffuse large B-cell lymphoma refractory
     Route: 041
  2. POLATUZUMAB VEDOTIN [Suspect]
     Active Substance: POLATUZUMAB VEDOTIN
     Indication: Diffuse large B-cell lymphoma refractory
     Route: 065
  3. BENDAMUSTINE [Suspect]
     Active Substance: BENDAMUSTINE
     Indication: Diffuse large B-cell lymphoma refractory
     Dosage: UP TO 2 DOSES, VERY 21 DAYS FOR UP TO?6 CYCLES
     Route: 065

REACTIONS (9)
  - Cytopenia [Unknown]
  - Febrile neutropenia [Unknown]
  - Thrombocytopenia [Unknown]
  - Neutropenia [Unknown]
  - Infection [Unknown]
  - Neuropathy peripheral [Unknown]
  - Anaemia [Unknown]
  - Pneumonia [Unknown]
  - Diarrhoea [Unknown]
